FAERS Safety Report 5317885-7 (Version None)
Quarter: 2007Q2

REPORT INFORMATION
  Report Type: 
  Country: None (occurrence: None)
  Receive Date: 20070430
  Receipt Date: 20070414
  Transmission Date: 20071010
  Serious: Yes (Hospitalization)
  Sender: FDA-Public Use
  Company Number: ACO_00338_2007

PATIENT
  Age: 80 Year
  Sex: Male

DRUGS (1)
  1. TERNELIN (TERNELIN) (ACORDA THERAPEUTICS) [Suspect]
     Indication: MUSCULOSKELETAL STIFFNESS
     Dosage: (3 MG QD ORAL)
     Route: 048
     Dates: start: 20070329, end: 20070330

REACTIONS (7)
  - CARDIAC FAILURE [None]
  - CARDIAC HYPERTROPHY [None]
  - DYSPNOEA [None]
  - HAEMODIALYSIS [None]
  - MALAISE [None]
  - ORTHOPNOEA [None]
  - WEIGHT INCREASED [None]
